FAERS Safety Report 21365352 (Version 10)
Quarter: 2025Q2

REPORT INFORMATION
  Report Type: Spontaneous
  Country: US (occurrence: US)
  Receive Date: 20220922
  Receipt Date: 20250625
  Transmission Date: 20250717
  Serious: No
  Sender: PFIZER
  Company Number: US-PFIZER INC-PV202200068386

PATIENT
  Age: 70 Year
  Sex: Female

DRUGS (5)
  1. IBRANCE [Suspect]
     Active Substance: PALBOCICLIB
     Dates: end: 20221020
  2. IBRANCE [Suspect]
     Active Substance: PALBOCICLIB
     Dates: start: 202211
  3. IBRANCE [Suspect]
     Active Substance: PALBOCICLIB
     Dates: start: 20220705
  4. IBRANCE [Suspect]
     Active Substance: PALBOCICLIB
  5. ANASTROZOLE [Concomitant]
     Active Substance: ANASTROZOLE

REACTIONS (17)
  - Alopecia [Not Recovered/Not Resolved]
  - Abdominal discomfort [Recovered/Resolved]
  - Skin exfoliation [Unknown]
  - Fluid retention [Unknown]
  - Full blood count increased [Recovered/Resolved]
  - Nail disorder [Unknown]
  - Mood altered [Unknown]
  - Anxiety [Unknown]
  - Onycholysis [Unknown]
  - Oral herpes [Recovered/Resolved]
  - White blood cell count decreased [Unknown]
  - Skin irritation [Unknown]
  - Blister [Unknown]
  - Stomatitis [Unknown]
  - Platelet disorder [Unknown]
  - Skin disorder [Unknown]
  - Infection susceptibility increased [Unknown]

NARRATIVE: CASE EVENT DATE: 20220101
